FAERS Safety Report 6105485-0 (Version None)
Quarter: 2009Q1

REPORT INFORMATION
  Report Type: 
  Country: None (occurrence: None)
  Receive Date: 20090306
  Receipt Date: 20090227
  Transmission Date: 20090719
  Serious: Yes (Hospitalization)
  Sender: FDA-Public Use
  Company Number: A0771636A

PATIENT
  Age: 64 Year
  Sex: Male
  Weight: 76.4 kg

DRUGS (6)
  1. AVANDIA [Suspect]
     Indication: DIABETES MELLITUS
     Dosage: 8MG PER DAY
     Route: 048
     Dates: start: 20040627, end: 20070501
  2. METFORMIN [Concomitant]
  3. BEXTRA [Concomitant]
  4. LIPITOR [Concomitant]
  5. MICARDIS HCT [Concomitant]
  6. MOBIC [Concomitant]

REACTIONS (3)
  - CARDIAC DISORDER [None]
  - CORONARY ARTERY DISEASE [None]
  - MYOCARDIAL INFARCTION [None]
